FAERS Safety Report 20783011 (Version 1)
Quarter: 2022Q2

REPORT INFORMATION
  Report Type: Spontaneous
  Country: US (occurrence: US)
  Receive Date: 20220504
  Receipt Date: 20220504
  Transmission Date: 20220721
  Serious: Yes (Other)
  Sender: FDA-Public Use
  Company Number: US-BAYER-2022A063024

PATIENT
  Age: 40 Year
  Sex: Male

DRUGS (5)
  1. KOGENATE FS [Suspect]
     Active Substance: ANTIHEMOPHILIC FACTOR, HUMAN RECOMBINANT
     Dosage: INFUSED 1540 UNITS IV EVERY 12-24 HOURS PRN FOR MINOR BLEED, OR INFUSE 3080 UNITS IV EVERY 24 HOURS
     Route: 042
  2. KOGENATE FS [Suspect]
     Active Substance: ANTIHEMOPHILIC FACTOR, HUMAN RECOMBINANT
     Dosage: 0.5 DF, ONCE, TO TREAT LEFT ELBOW BLEED
     Route: 042
  3. KOGENATE FS [Suspect]
     Active Substance: ANTIHEMOPHILIC FACTOR, HUMAN RECOMBINANT
     Dosage: 0.5 DF, ONCE, TO TREAT LEFT ANKLE BLEED
     Route: 042
  4. KOGENATE FS [Suspect]
     Active Substance: ANTIHEMOPHILIC FACTOR, HUMAN RECOMBINANT
     Dosage: 0.5 DF, ONCE, TO TREAT RIGHT KNEE BLEED
     Route: 042
  5. KOGENATE FS [Suspect]
     Active Substance: ANTIHEMOPHILIC FACTOR, HUMAN RECOMBINANT
     Dosage: 0.5 DF, ONCE, TO TREAT MUSCLE BLEED
     Route: 042

REACTIONS (5)
  - Appendicitis [None]
  - Haemarthrosis [None]
  - Haemarthrosis [None]
  - Haemarthrosis [None]
  - Muscle haemorrhage [None]

NARRATIVE: CASE EVENT DATE: 20220101
